FAERS Safety Report 4886130-9 (Version None)
Quarter: 2006Q1

REPORT INFORMATION
  Report Type: 
  Country: None (occurrence: None)
  Receive Date: 20060118
  Receipt Date: 20060118
  Transmission Date: 20060701
  Serious: Yes (Other)
  Sender: FDA-Public Use
  Company Number: None

PATIENT
  Age: 58 Year
  Sex: Male
  Weight: 136.0791 kg

DRUGS (14)
  1. METFORMIN [Suspect]
     Indication: DIABETES MELLITUS
     Dosage: 2 TABS QAM + 3 TABS Q8PM
  2. AVANDIA [Concomitant]
  3. HUMALOG [Concomitant]
  4. LANTUS [Concomitant]
  5. LIPITOR [Concomitant]
  6. FOLIC ACID [Concomitant]
  7. CLARINEX [Concomitant]
  8. SINGULAIR [Concomitant]
  9. FLONASE [Concomitant]
  10. ADVAIR DISKUS 100/50 [Concomitant]
  11. DEMADEX [Concomitant]
  12. DILTIAZEM HCL [Concomitant]
  13. ACCUPRIL [Concomitant]
  14. VITAMINS [Concomitant]

REACTIONS (2)
  - BLOOD GLUCOSE INCREASED [None]
  - THERAPEUTIC RESPONSE UNEXPECTED WITH DRUG SUBSTITUTION [None]
